FAERS Safety Report 5033093-1 (Version None)
Quarter: 2006Q2

REPORT INFORMATION
  Report Type: 
  Country: None (occurrence: None)
  Receive Date: 20060620
  Receipt Date: 20060531
  Transmission Date: 20061013
  Serious: Yes (Other)
  Sender: FDA-Public Use
  Company Number: US200606000438

PATIENT
  Age: 74 Year
  Sex: Female

DRUGS (3)
  1. FORTEO [Suspect]
     Indication: BONE DENSITY DECREASED
     Dosage: SEE IMAGE
     Dates: start: 20060401
  2. FORTEO [Suspect]
  3. FORTEO [Concomitant]

REACTIONS (4)
  - FEAR [None]
  - PHARMACEUTICAL PRODUCT COMPLAINT [None]
  - RETINAL DISORDER [None]
  - VISUAL ACUITY REDUCED [None]
